FAERS Safety Report 20067877 (Version 1)
Quarter: 2021Q4

REPORT INFORMATION
  Report Type: Other
  Country: GB (occurrence: GB)
  Receive Date: 20211115
  Receipt Date: 20211115
  Transmission Date: 20220304
  Serious: Yes (Hospitalization)
  Sender: FDA-Public Use
  Company Number: GB-MACLEODS PHARMA UK LTD-MAC2021033309

PATIENT

DRUGS (11)
  1. ACYCLOVIR [Suspect]
     Active Substance: ACYCLOVIR
     Indication: Product used for unknown indication
     Dosage: 10 MILLILITER, BID (200MG IN 5ML SUSPENSION TAKE TWO 5ML SPOONFULS TWICE A DAY AS DIRECTED)
     Route: 065
  2. LEVOFLOXACIN [Suspect]
     Active Substance: LEVOFLOXACIN
     Indication: Product used for unknown indication
     Dosage: 500 MILLIGRAM, QD
     Route: 065
  3. ALLOPURINOL [Suspect]
     Active Substance: ALLOPURINOL
     Indication: Product used for unknown indication
     Dosage: 1 DOSAGE FORM, QD (EVERY MORNING)
     Route: 065
  4. APIXABAN [Concomitant]
     Active Substance: APIXABAN
     Indication: Product used for unknown indication
     Dosage: 1 DOSAGE FORM, BID
     Route: 065
  5. CHLORHEXIDINE [Concomitant]
     Active Substance: CHLORHEXIDINE
     Indication: Product used for unknown indication
     Dosage: 10 MILLILITER, QID
     Route: 065
  6. MELPHALAN [Concomitant]
     Active Substance: MELPHALAN
     Indication: Rash
     Dosage: 2 DOSAGE FORM, BID, EACH DAY ON DAYS 1-7 OF CYCLE
     Route: 065
  7. NYSTATIN [Concomitant]
     Active Substance: NYSTATIN
     Indication: Product used for unknown indication
     Dosage: UNK, (100,000 UNITS/ML SUSPENSION RINSE ROUND THE MOUTH, THEN SWALLOW ONE ML FOUR TIMES A DAY)
     Route: 065
  8. OMEPRAZOLE [Concomitant]
     Active Substance: OMEPRAZOLE
     Indication: Product used for unknown indication
     Dosage: 1 DOSAGE FORM, QD (DISSOLVE ONE TABLET IN WATER AND TAKE)
     Route: 065
  9. PREDNISOLONE [Concomitant]
     Active Substance: PREDNISOLONE
     Indication: Product used for unknown indication
     Dosage: 8 DOSAGE FORM, QD (EVERY MORNING ON DAYS 1 TO 7 OF CYCLE)
     Route: 065
  10. THALIDOMIDE [Concomitant]
     Active Substance: THALIDOMIDE
     Indication: Product used for unknown indication
     Dosage: 1 DOSAGE FORM, QD (AT NIGHT) (HAS NOT TAKEN ANY YET AS FELT TOO SICK AFTER TAKING OTHER TABLETS)
     Route: 065
  11. COTRIMOXAZOLE [Concomitant]
     Active Substance: SULFAMETHOXAZOLE\TRIMETHOPRIM
     Indication: Product used for unknown indication
     Dosage: 10 MILLILITER, BID (MONDAY, WEDNESDAY AND FRIDAY )
     Route: 065

REACTIONS (2)
  - Vomiting [Unknown]
  - Rash [Unknown]
